FAERS Safety Report 5506649-7 (Version None)
Quarter: 2007Q4

REPORT INFORMATION
  Report Type: 
  Country: None (occurrence: None)
  Receive Date: 20071105
  Receipt Date: 20071022
  Transmission Date: 20080405
  Serious: Yes (Hospitalization)
  Sender: FDA-Public Use
  Company Number: US-ROCHE-421329

PATIENT
  Age: 52 Year
  Sex: Male
  Weight: 82.1 kg

DRUGS (11)
  1. PEG-INTERFERON ALFA 2A (RO 25-8310) [Suspect]
     Route: 058
     Dates: start: 20050131
  2. RIBAVIRIN [Suspect]
     Route: 048
     Dates: start: 20050131
  3. LOTREL [Concomitant]
  4. SYNTHROID [Concomitant]
  5. PAXIL [Concomitant]
  6. BUSPAR [Concomitant]
  7. NEXIUM [Concomitant]
  8. MULTIVITAMIN NOS [Concomitant]
  9. FISH OIL [Concomitant]
     Dosage: FOR MAINTENANCE.
  10. GLUCOSAMINE [Concomitant]
     Dosage: FOR MAINTENANCE.
  11. VITAMIN B-12 [Concomitant]
     Dosage: FOR MAINTENANCE.
     Dates: start: 20041213

REACTIONS (1)
  - ELECTROCARDIOGRAM ST SEGMENT DEPRESSION [None]
